FAERS Safety Report 23282003 (Version 1)
Quarter: 2023Q4

REPORT INFORMATION
  Report Type: Report from Study
  Country: CA (occurrence: CA)
  Receive Date: 20231211
  Receipt Date: 20231211
  Transmission Date: 20240110
  Serious: Yes (Other)
  Sender: FDA-Public Use
  Company Number: CA-BAYER-2023A175181

PATIENT
  Age: 79 Year
  Sex: Female

DRUGS (7)
  1. CIPROFLOXACIN [Suspect]
     Active Substance: CIPROFLOXACIN
     Indication: Muscle spasms
     Dosage: 500 MG, QD
     Route: 048
  2. CIPROFLOXACIN [Suspect]
     Active Substance: CIPROFLOXACIN
     Indication: Diarrhoea
  3. CIPROFLOXACIN [Suspect]
     Active Substance: CIPROFLOXACIN
     Indication: Constipation
  4. PREDNISONE [Suspect]
     Active Substance: PREDNISONE
     Indication: Muscle spasms
     Dosage: 10,MG
  5. PREDNISONE [Suspect]
     Active Substance: PREDNISONE
     Indication: Diarrhoea
  6. PREDNISONE [Suspect]
     Active Substance: PREDNISONE
     Indication: Constipation
  7. REMICADE [Suspect]
     Active Substance: INFLIXIMAB
     Indication: Crohn^s disease

REACTIONS (3)
  - Diverticulitis [None]
  - Muscle spasms [Recovered/Resolved]
  - Oral candidiasis [Recovered/Resolved]
